FAERS Safety Report 5603608-0 (Version None)
Quarter: 2008Q1

REPORT INFORMATION
  Report Type: 
  Country: None (occurrence: None)
  Receive Date: 20080122
  Receipt Date: 20080107
  Transmission Date: 20080703
  Serious: Yes (Death, Hospitalization)
  Sender: FDA-Public Use
  Company Number: 2007002524

PATIENT
  Age: 80 Year
  Sex: Female

DRUGS (5)
  1. TARCEVA [Suspect]
     Indication: NON-SMALL CELL LUNG CANCER STAGE IV
     Dosage: (150 MG, 1 IN 1 D), ORAL
     Route: 048
     Dates: start: 20071001, end: 20071218
  2. ASPIRIN [Concomitant]
  3. HYDROCODONE BITARTRATE [Concomitant]
  4. LORAZEPAM [Concomitant]
  5. LACTOSE(LACTOSE) [Concomitant]

REACTIONS (15)
  - ANOREXIA [None]
  - ASTHENIA [None]
  - BACK PAIN [None]
  - DIARRHOEA [None]
  - ELECTROCARDIOGRAM ABNORMAL [None]
  - FATIGUE [None]
  - INTERSTITIAL LUNG DISEASE [None]
  - LYMPHANGIOSIS CARCINOMATOSA [None]
  - METASTASES TO SPINE [None]
  - MUSCULOSKELETAL CHEST PAIN [None]
  - OPPORTUNISTIC INFECTION [None]
  - RESPIRATORY FAILURE [None]
  - URINARY TRACT INFECTION [None]
  - VOCAL CORD PARALYSIS [None]
  - WEIGHT DECREASED [None]
